FAERS Safety Report 8032436-4 (Version None)
Quarter: 2012Q1

REPORT INFORMATION
  Report Type: 
  Country: None (occurrence: None)
  Receive Date: 20120110
  Receipt Date: 20120104
  Transmission Date: 20120608
  Serious: Yes (Other)
  Sender: FDA-Public Use
  Company Number: DE-JNJFOC-20120101595

PATIENT

DRUGS (13)
  1. NEULASTA [Suspect]
     Indication: HODGKIN'S DISEASE
     Dosage: 3 CYCLE
     Route: 058
  2. NEULASTA [Suspect]
     Dosage: 1 CYCLE
     Route: 058
     Dates: start: 20081220, end: 20081220
  3. GEMCITABINE [Suspect]
     Indication: HODGKIN'S DISEASE
     Dosage: 1 CYCLE
     Route: 042
     Dates: start: 20081219
  4. METOCLOPRAMIDE HCL [Concomitant]
     Indication: PRODUCT USED FOR UNKNOWN INDICATION
     Route: 065
  5. PREDNISONE TAB [Suspect]
     Dosage: 1 CYCLE
     Route: 048
     Dates: start: 20081219, end: 20081221
  6. DOXORUBICIN HCL [Suspect]
     Dosage: 2 CYCLE
     Route: 042
     Dates: start: 20090102, end: 20090102
  7. KEVATRIL [Concomitant]
     Indication: PRODUCT USED FOR UNKNOWN INDICATION
     Route: 065
     Dates: start: 20081219, end: 20090102
  8. VINBLASTINE SULFATE [Suspect]
     Indication: HODGKIN'S DISEASE
     Dosage: 1 CYCLE
     Route: 042
     Dates: start: 20081219, end: 20081219
  9. VINBLASTINE SULFATE [Suspect]
     Dosage: 2 CYCLE
     Route: 042
     Dates: start: 20090102, end: 20090102
  10. NEULASTA [Suspect]
     Dosage: 2 CYCLE
     Route: 058
     Dates: start: 20090103, end: 20090103
  11. PREDNISONE TAB [Suspect]
     Indication: HODGKIN'S DISEASE
     Dosage: 2 CYCLE
     Route: 048
     Dates: start: 20090102, end: 20090102
  12. DOXORUBICIN HCL [Suspect]
     Indication: HODGKIN'S DISEASE
     Dosage: 1 CYCLE
     Route: 042
     Dates: start: 20081219, end: 20081219
  13. GEMCITABINE [Suspect]
     Dosage: 2 CYCLE
     Route: 042
     Dates: start: 20090102, end: 20090102

REACTIONS (2)
  - SYNCOPE [None]
  - DYSPNOEA [None]
